FAERS Safety Report 13119555 (Version 2)
Quarter: 2017Q1

REPORT INFORMATION
  Report Type: Report from Study
  Country: US (occurrence: US)
  Receive Date: 20170116
  Receipt Date: 20170125
  Transmission Date: 20170428
  Serious: No
  Sender: FDA-Public Use
  Company Number: US-ROCHE-1879388

PATIENT
  Age: 89 Year
  Sex: Male

DRUGS (10)
  1. LUCENTIS [Suspect]
     Active Substance: RANIBIZUMAB
     Indication: NEOVASCULAR AGE-RELATED MACULAR DEGENERATION
     Dosage: RIGHT EYE:  INJECTION
     Route: 065
     Dates: start: 20160728
  2. PROPARACAINE [Concomitant]
     Active Substance: PROPARACAINE
     Dosage: 0.5: %
     Route: 065
  3. OFLOXACIN. [Concomitant]
     Active Substance: OFLOXACIN
  4. PHENYLEPHRINE [Concomitant]
     Active Substance: PHENYLEPHRINE\PHENYLEPHRINE HYDROCHLORIDE
     Dosage: 2.8: %
     Route: 065
  5. TROPICAMIDE. [Concomitant]
     Active Substance: TROPICAMIDE
     Dosage: 1 : %
     Route: 065
  6. AVASTIN [Suspect]
     Active Substance: BEVACIZUMAB
     Indication: NEOVASCULAR AGE-RELATED MACULAR DEGENERATION
     Dosage: INJECTION: 1.25MG/0.05ML
     Route: 065
  7. LISINOPRIL. [Concomitant]
     Active Substance: LISINOPRIL
     Route: 065
  8. LUCENTIS [Suspect]
     Active Substance: RANIBIZUMAB
     Indication: CHOROIDAL NEOVASCULARISATION
  9. ALLOPURINOL. [Concomitant]
     Active Substance: ALLOPURINOL
     Route: 065
  10. VISINE (UNITED STATES) [Concomitant]
     Dosage: PRN:  SOLUTION
     Route: 065

REACTIONS (6)
  - Fall [Unknown]
  - Vision blurred [Recovered/Resolved]
  - Drug ineffective [Unknown]
  - Vitreous floaters [Recovered/Resolved]
  - Altered visual depth perception [Unknown]
  - Off label use [Unknown]

NARRATIVE: CASE EVENT DATE: 20161027
